FAERS Safety Report 8218791-0 (Version None)
Quarter: 2012Q1

REPORT INFORMATION
  Report Type: 
  Country: None (occurrence: None)
  Receive Date: 20120319
  Receipt Date: 20120314
  Transmission Date: 20120608
  Serious: Yes (Hospitalization, Other)
  Sender: FDA-Public Use
  Company Number: PHHY2012AR023080

PATIENT
  Sex: Female

DRUGS (2)
  1. DIOVAN [Suspect]
     Dosage: HALF TABLET DAILY
     Dates: start: 20120301
  2. DIOVAN [Suspect]
     Dosage: HALF TABLET DAILY
     Dates: end: 20111129

REACTIONS (3)
  - SINGLE FUNCTIONAL KIDNEY [None]
  - RENAL CANCER [None]
  - WRONG TECHNIQUE IN DRUG USAGE PROCESS [None]
